FAERS Safety Report 18317631 (Version 3)
Quarter: 2021Q2

REPORT INFORMATION
  Report Type: Report from Study
  Country: CN (occurrence: CN)
  Receive Date: 20200928
  Receipt Date: 20210628
  Transmission Date: 20210717
  Serious: Yes (Hospitalization)
  Sender: FDA-Public Use
  Company Number: CN-ROCHE-2643936

PATIENT
  Age: 41 Year
  Sex: Female
  Weight: 77.5 kg

DRUGS (6)
  1. LEVOCARNITINE. [Concomitant]
     Active Substance: LEVOCARNITINE
     Dates: start: 20200611, end: 20200611
  2. PANTOPRAZOLE [Concomitant]
     Active Substance: PANTOPRAZOLE
     Dates: start: 20200611, end: 20200611
  3. NIFEDIPINE. [Concomitant]
     Active Substance: NIFEDIPINE
     Dates: start: 20180223
  4. ZOPICLONE [Concomitant]
     Active Substance: ZOPICLONE
     Indication: INSOMNIA
     Dates: start: 20180222
  5. TRASTUZUMAB EMTANSINE [Suspect]
     Active Substance: ADO-TRASTUZUMAB EMTANSINE
     Indication: BREAST CANCER METASTATIC
     Dosage: 11/JUN/2020, DATE OF MOST RECENT DOSE OF 273 MG TRASTUZUMAB EMTANSINE PRIOR TO AE/SAE ONSET
     Route: 042
     Dates: start: 20170906
  6. DIISOPROPYLAMINE DICHLOROACETATE [Concomitant]
     Indication: LIVER INJURY
     Dates: start: 20200611, end: 20200611

REACTIONS (1)
  - Gastroenteritis [Recovered/Resolved]

NARRATIVE: CASE EVENT DATE: 20200712
